FAERS Safety Report 7269912-8 (Version None)
Quarter: 2011Q1

REPORT INFORMATION
  Report Type: 
  Country: None (occurrence: None)
  Receive Date: 20110202
  Receipt Date: 20110127
  Transmission Date: 20110831
  Serious: Yes (Life-Threatening, Hospitalization)
  Sender: FDA-Public Use
  Company Number: JP-ROCHE-636731

PATIENT
  Sex: Female
  Weight: 47 kg

DRUGS (15)
  1. TOCILIZUMAB [Suspect]
     Route: 041
     Dates: start: 20090209, end: 20090209
  2. TOCILIZUMAB [Suspect]
     Route: 041
     Dates: start: 20090309, end: 20090309
  3. RHEUMATREX [Concomitant]
     Route: 048
     Dates: start: 20070910
  4. TOCILIZUMAB [Suspect]
     Route: 041
     Dates: start: 20081215, end: 20081215
  5. TOCILIZUMAB [Suspect]
     Route: 041
     Dates: start: 20081117, end: 20081117
  6. TOCILIZUMAB [Suspect]
     Route: 041
     Dates: start: 20090508, end: 20090508
  7. TOCILIZUMAB [Suspect]
     Route: 041
     Dates: start: 20090601, end: 20090601
  8. RHEUMATREX [Concomitant]
     Dosage: FORM: ORAL FORMULATION (NOT OTHERWISE SPECIFIED)
     Route: 048
  9. TOCILIZUMAB [Suspect]
     Route: 041
     Dates: start: 20090406, end: 20090406
  10. PREDONINE [Concomitant]
     Dosage: FORM: ORAL FORMULATION (NOT OTHERWISE SPECIFIED)
     Route: 048
     Dates: start: 20070910
  11. BONALON [Concomitant]
     Route: 048
     Dates: start: 20070910
  12. TOCILIZUMAB [Suspect]
     Indication: RHEUMATOID ARTHRITIS
     Route: 041
     Dates: start: 20081020, end: 20081020
  13. TOCILIZUMAB [Suspect]
     Route: 041
     Dates: start: 20090114, end: 20090114
  14. GASTER D [Concomitant]
     Route: 048
     Dates: start: 20070910
  15. LORCAM [Concomitant]
     Route: 048

REACTIONS (1)
  - ANAPHYLACTIC SHOCK [None]
